FAERS Safety Report 12923181 (Version 1)
Quarter: 2016Q4

REPORT INFORMATION
  Report Type: Spontaneous
  Country: US (occurrence: US)
  Receive Date: 20161109
  Receipt Date: 20161109
  Transmission Date: 20170207
  Serious: Yes (Other)
  Sender: FDA-Public Use
  Company Number: US-BRISTOL-MYERS SQUIBB COMPANY-BMS-2016-088320

PATIENT
  Sex: Male

DRUGS (1)
  1. OPDIVO [Suspect]
     Active Substance: NIVOLUMAB
     Indication: LUNG NEOPLASM MALIGNANT
     Dosage: UNK
     Route: 042

REACTIONS (11)
  - Malaise [Unknown]
  - Abdominal pain [Unknown]
  - Back pain [Unknown]
  - Abdominal distension [Unknown]
  - Pain [Unknown]
  - Pneumonia [Unknown]
  - Weight increased [Unknown]
  - Chromaturia [Unknown]
  - Neoplasm [Unknown]
  - Constipation [Unknown]
  - Chest pain [Unknown]
